FAERS Safety Report 7606561-3 (Version None)
Quarter: 2011Q3

REPORT INFORMATION
  Report Type: 
  Country: None (occurrence: None)
  Receive Date: 20110712
  Receipt Date: 20110712
  Transmission Date: 20111222
  Serious: Yes (Other)
  Sender: FDA-Public Use
  Company Number: None

PATIENT
  Sex: Male
  Weight: 37.6 kg

DRUGS (1)
  1. OXCARBAZEPINE [Suspect]
     Indication: EPILEPSY
     Dates: start: 20090604, end: 20110125

REACTIONS (4)
  - AGGRESSION [None]
  - ABNORMAL BEHAVIOUR [None]
  - EDUCATIONAL PROBLEM [None]
  - AFFECT LABILITY [None]
